FAERS Safety Report 24240576 (Version 1)
Quarter: 2024Q3

REPORT INFORMATION
  Report Type: Report from Study
  Country: JP (occurrence: JP)
  Receive Date: 20240822
  Receipt Date: 20240822
  Transmission Date: 20241017
  Serious: Yes (Other)
  Sender: ABBVIE
  Company Number: JP-TAKEDA-2024TJP012060

PATIENT
  Sex: Male
  Weight: 67.5 kg

DRUGS (7)
  1. LEUPROLIDE ACETATE [Suspect]
     Active Substance: ISOPROPYL ALCOHOL\LEUPROLIDE ACETATE
     Indication: Bulbospinal muscular atrophy congenital
     Dosage: 11.25 MILLIGRAM, Q3MONTHS
     Route: 058
     Dates: start: 20180926
  2. Alosenn [Concomitant]
     Indication: Constipation
     Dosage: 1 GRAM
     Route: 065
     Dates: end: 20210519
  3. CRESTOR [Concomitant]
     Active Substance: ROSUVASTATIN CALCIUM
     Indication: Product used for unknown indication
     Dosage: 2.5 MILLIGRAM
     Route: 065
  4. DIETARY SUPPLEMENT\PROBIOTICS [Concomitant]
     Active Substance: DIETARY SUPPLEMENT\PROBIOTICS NOS
     Indication: Product used for unknown indication
     Dosage: 3 DOSAGE FORM
     Route: 065
     Dates: start: 20201028
  5. FLUNITRAZEPAM [Concomitant]
     Active Substance: FLUNITRAZEPAM
     Indication: Neurosis
     Dosage: 1 MILLIGRAM
     Route: 065
     Dates: end: 20181029
  6. FLUNITRAZEPAM [Concomitant]
     Active Substance: FLUNITRAZEPAM
     Indication: Neurosis
     Dosage: 1 MILLIGRAM
     Route: 065
     Dates: end: 20181125
  7. FLUNITRAZEPAM [Concomitant]
     Active Substance: FLUNITRAZEPAM
     Indication: Neurosis
     Dosage: 1 MILLIGRAM
     Route: 065
     Dates: start: 20191016

REACTIONS (2)
  - Diabetes mellitus [Unknown]
  - Hyperlipidaemia [Unknown]
